FAERS Safety Report 6544190-3 (Version None)
Quarter: 2010Q1

REPORT INFORMATION
  Report Type: 
  Country: None (occurrence: None)
  Receive Date: 20100119
  Receipt Date: 20100119
  Transmission Date: 20100710
  Serious: Yes (Other)
  Sender: FDA-Public Use
  Company Number: None

PATIENT
  Age: 35 Year
  Sex: Male
  Weight: 72.5755 kg

DRUGS (1)
  1. ROLAIDS MULTI-SYMPTOM BERRY 312547654579 [Suspect]
     Indication: DYSPEPSIA
     Dosage: 2 TABLETS ONCE PO
     Route: 048
     Dates: start: 20100118, end: 20100118

REACTIONS (4)
  - ABDOMINAL PAIN [None]
  - DIARRHOEA [None]
  - NAUSEA [None]
  - PRODUCT QUALITY ISSUE [None]
